FAERS Safety Report 7045584-2 (Version None)
Quarter: 2010Q4

REPORT INFORMATION
  Report Type: 
  Country: None (occurrence: None)
  Receive Date: 20101013
  Receipt Date: 20101013
  Transmission Date: 20110411
  Serious: Yes (Other)
  Sender: FDA-Public Use
  Company Number: None

PATIENT
  Age: 37 Year
  Sex: Male
  Weight: 142.8831 kg

DRUGS (2)
  1. OXYCONTIN [Suspect]
     Indication: ARTHRITIS
     Dosage: 1 TABLET 2 TIMES A DAY PO
     Route: 048
     Dates: start: 20080311, end: 20101010
  2. OXYCONTIN [Suspect]
     Indication: BONE DISORDER
     Dosage: 1 TABLET 2 TIMES A DAY PO
     Route: 048
     Dates: start: 20080311, end: 20101010

REACTIONS (8)
  - ABDOMINAL DISTENSION [None]
  - DRUG EFFECT DECREASED [None]
  - FLATULENCE [None]
  - GASTROINTESTINAL PAIN [None]
  - HEADACHE [None]
  - NAUSEA [None]
  - PRODUCT FORMULATION ISSUE [None]
  - THERAPEUTIC RESPONSE DECREASED [None]
